FAERS Safety Report 5847362-6 (Version None)
Quarter: 2008Q3

REPORT INFORMATION
  Report Type: 
  Country: None (occurrence: None)
  Receive Date: 20080813
  Receipt Date: 20080728
  Transmission Date: 20090109
  Serious: Yes (Other)
  Sender: FDA-Public Use
  Company Number: DSA_32155_2008

PATIENT
  Age: 36 Year
  Sex: Female

DRUGS (3)
  1. DILTIAZEM [Suspect]
     Indication: HYPERTENSION
     Dosage: (120 MG QD)
  2. TAMOXIFEN (UNKNOWN) [Concomitant]
  3. GOSERELIN (UNKNOWN) [Concomitant]

REACTIONS (4)
  - ACUTE GENERALISED EXANTHEMATOUS PUSTULOSIS [None]
  - ASTHENIA [None]
  - INFLAMMATION [None]
  - SKIN OEDEMA [None]
